FAERS Safety Report 18776751 (Version 1)
Quarter: 2021Q1

REPORT INFORMATION
  Report Type: Report from Study
  Country: BR (occurrence: BR)
  Receive Date: 20210122
  Receipt Date: 20210122
  Transmission Date: 20210419
  Serious: Yes (Death, Hospitalization, Other)
  Sender: FDA-Public Use
  Company Number: NVSC2021BR014527

PATIENT
  Age: 93 Year
  Sex: Female

DRUGS (1)
  1. RIBOCICLIB. [Suspect]
     Active Substance: RIBOCICLIB
     Indication: BREAST CANCER
     Dosage: 3 DF, QD
     Route: 065
     Dates: start: 20200918

REACTIONS (11)
  - Renal failure [Unknown]
  - Gastrointestinal haemorrhage [Fatal]
  - Metastases to bone [Unknown]
  - Swelling [Unknown]
  - Respiratory disorder [Unknown]
  - Blood pressure decreased [Unknown]
  - Headache [Unknown]
  - Cardiac arrest [Fatal]
  - Dyspnoea [Unknown]
  - Pain [Unknown]
  - Multiple organ dysfunction syndrome [Unknown]

NARRATIVE: CASE EVENT DATE: 20210116
